FAERS Safety Report 9795900 (Version 2)
Quarter: 2014Q1

REPORT INFORMATION
  Report Type: Spontaneous
  Country: US (occurrence: US)
  Receive Date: 20140103
  Receipt Date: 20140306
  Transmission Date: 20141002
  Serious: No
  Sender: FDA-Public Use
  Company Number: US-B.I. PHARMACEUTICALS,INC./RIDGEFIELD-2013-BI-43789BP

PATIENT
  Age: 58 Year
  Sex: Female
  Weight: 136 kg

DRUGS (6)
  1. SPIRIVA [Suspect]
     Indication: CHRONIC OBSTRUCTIVE PULMONARY DISEASE
     Dosage: 18 MCG
     Route: 055
     Dates: start: 2012
  2. LISINOPRIL [Concomitant]
     Indication: HYPERTENSION
     Dosage: 20 MG
     Route: 048
  3. ADVAIR [Concomitant]
     Indication: CHRONIC OBSTRUCTIVE PULMONARY DISEASE
     Dosage: DOSE PER APPLICATION: 500/50 MCG, DAILY DOSE: 1000/100 MCG
     Route: 055
  4. ALPRAZOLAM [Concomitant]
     Indication: ANXIETY
     Dosage: 4 MG
     Route: 048
  5. HYDROCODONE [Concomitant]
     Indication: OSTEOPOROSIS
     Dosage: (TABLET) STRENGTH: 10/325 MG; DAILY DOSE: 20/ 650 MG
     Route: 048
  6. COREG [Concomitant]
     Indication: MITRAL VALVE INCOMPETENCE
     Dosage: 6.25 MG
     Route: 048

REACTIONS (4)
  - Neck pain [Not Recovered/Not Resolved]
  - Product quality issue [Recovered/Resolved]
  - Product quality issue [Recovered/Resolved]
  - Product quality issue [Recovered/Resolved]
